FAERS Safety Report 23858399 (Version 1)
Quarter: 2024Q2

REPORT INFORMATION
  Report Type: Other
  Country: US (occurrence: None)
  Receive Date: 20240515
  Receipt Date: 20240515
  Transmission Date: 20240716
  Serious: Yes (Other)
  Sender: FDA-Public Use
  Company Number: US-ROCHE-3152133

PATIENT
  Age: 50 Year
  Sex: Female
  Weight: 64.468 kg

DRUGS (4)
  1. OCREVUS [Suspect]
     Active Substance: OCRELIZUMAB
     Indication: Relapsing multiple sclerosis
     Dosage: INFUSE 600 MG EVERY 6 MONTHS
     Route: 042
     Dates: start: 20180131
  2. OCREVUS [Suspect]
     Active Substance: OCRELIZUMAB
     Route: 042
     Dates: start: 201802
  3. IBUPROFEN [Concomitant]
     Active Substance: IBUPROFEN
     Route: 048
  4. VITAMIN D3 [Concomitant]
     Active Substance: CHOLECALCIFEROL

REACTIONS (4)
  - Malaise [Unknown]
  - Dysmetria [Unknown]
  - Dysdiadochokinesis [Unknown]
  - Ataxia [Unknown]
